FAERS Safety Report 20322624 (Version 10)
Quarter: 2022Q4

REPORT INFORMATION
  Report Type: Report from Study
  Country: US (occurrence: US)
  Receive Date: 20220111
  Receipt Date: 20221227
  Transmission Date: 20230112
  Serious: Yes (Other)
  Sender: FDA-Public Use
  Company Number: US-TAKEDA-2022TUS000536

PATIENT
  Sex: Male

DRUGS (4)
  1. MARIBAVIR [Suspect]
     Active Substance: MARIBAVIR
     Indication: Cytomegalovirus infection
     Dosage: 400 MILLIGRAM, BID
     Route: 048
     Dates: start: 20220102, end: 20220720
  2. MARIBAVIR [Suspect]
     Active Substance: MARIBAVIR
     Dosage: 400 MILLIGRAM, BID
     Route: 048
     Dates: start: 20220817
  3. HUMAN IMMUNOGLOBULIN G [Suspect]
     Active Substance: HUMAN IMMUNOGLOBULIN G
     Indication: Immune system disorder
     Dosage: UNK UNK, Q3WEEKS
     Route: 042
  4. FOSCARNET [Concomitant]
     Active Substance: FOSCARNET
     Indication: Cytomegalovirus infection
     Dosage: UNK
     Route: 065

REACTIONS (15)
  - Cytomegalovirus infection [Unknown]
  - Taste disorder [Unknown]
  - Decreased appetite [Recovered/Resolved]
  - Diarrhoea [Unknown]
  - Infection [Unknown]
  - Dizziness [Unknown]
  - Disorientation [Unknown]
  - Dysarthria [Unknown]
  - Viral load increased [Unknown]
  - Fatigue [Unknown]
  - Increased appetite [Unknown]
  - Weight increased [Unknown]
  - Symptom recurrence [Unknown]
  - Product dispensing error [Unknown]
  - Product distribution issue [Unknown]
